FAERS Safety Report 21997271 (Version 6)
Quarter: 2023Q2

REPORT INFORMATION
  Report Type: Report from Study
  Country: CA (occurrence: CA)
  Receive Date: 20230216
  Receipt Date: 20230607
  Transmission Date: 20230721
  Serious: Yes (Other)
  Sender: FDA-Public Use
  Company Number: CA-JNJFOC-20210401969

PATIENT
  Age: 55 Year
  Sex: Female

DRUGS (4)
  1. SIMPONI [Suspect]
     Active Substance: GOLIMUMAB
     Indication: Rheumatoid arthritis
     Route: 058
     Dates: start: 20190417
  2. SIMPONI [Suspect]
     Active Substance: GOLIMUMAB
     Route: 058
     Dates: start: 20230515
  3. SIMPONI [Suspect]
     Active Substance: GOLIMUMAB
     Route: 058
  4. XARELTO [Suspect]
     Active Substance: RIVAROXABAN
     Indication: Thrombosis prophylaxis
     Route: 065

REACTIONS (13)
  - Joint dislocation [Recovering/Resolving]
  - Knee arthroplasty [Unknown]
  - Migraine [Not Recovered/Not Resolved]
  - Somnolence [Recovered/Resolved]
  - Fatigue [Recovered/Resolved]
  - Malaise [Recovered/Resolved]
  - Arthritis [Unknown]
  - Back pain [Unknown]
  - COVID-19 [Not Recovered/Not Resolved]
  - Musculoskeletal chest pain [Unknown]
  - Impaired healing [Recovering/Resolving]
  - Feeling cold [Unknown]
  - Procedural pain [Unknown]

NARRATIVE: CASE EVENT DATE: 20210330
